FAERS Safety Report 4485098-7 (Version None)
Quarter: 2004Q4

REPORT INFORMATION
  Report Type: 
  Country: None (occurrence: None)
  Receive Date: 20041026
  Receipt Date: 20031007
  Transmission Date: 20050328
  Serious: No
  Sender: FDA-Public Use
  Company Number: US-BRISTOL-MYERS SQUIBB COMPANY-12403929

PATIENT
  Age: 54 Year
  Sex: Male
  Weight: 113 kg

DRUGS (7)
  1. GLUCOPHAGE XR [Suspect]
     Dosage: STOPPED IN MAR-2003, RE-STARTED 06-OCT-2003
     Route: 048
     Dates: start: 20010101
  2. NPH INSULIN [Concomitant]
  3. REGULAR ILETIN II [Concomitant]
  4. GLIPIZIDE [Concomitant]
  5. LIPITOR [Concomitant]
  6. DIOVAN [Concomitant]
  7. CELEBREX [Concomitant]

REACTIONS (2)
  - BLOOD GLUCOSE FLUCTUATION [None]
  - HYPOAESTHESIA [None]
